FAERS Safety Report 13653906 (Version 1)
Quarter: 2017Q2

REPORT INFORMATION
  Report Type: Spontaneous
  Country: US (occurrence: US)
  Receive Date: 20170614
  Receipt Date: 20170614
  Transmission Date: 20170830
  Serious: No
  Sender: FDA-Public Use
  Company Number: US-MAYNE PHARMA-2016MYN000770

PATIENT
  Age: 75 Year
  Sex: Female

DRUGS (2)
  1. DORYX MPC [Suspect]
     Active Substance: DOXYCYCLINE HYCLATE
     Indication: ARTHROPOD BITE
     Dosage: 120 MG, QD FOR 12 DAYS
     Route: 048
     Dates: start: 20161019
  2. DORYX MPC [Suspect]
     Active Substance: DOXYCYCLINE HYCLATE
     Indication: CELLULITIS

REACTIONS (1)
  - Blister [Recovering/Resolving]

NARRATIVE: CASE EVENT DATE: 201610
